FAERS Safety Report 13292841 (Version 1)
Quarter: 2017Q1

REPORT INFORMATION
  Report Type: Spontaneous
  Country: US (occurrence: US)
  Receive Date: 20170303
  Receipt Date: 20170303
  Transmission Date: 20170428
  Serious: Yes (Hospitalization)
  Sender: FDA-Public Use
  Company Number: PHEH2017US006092

PATIENT
  Age: 65 Year
  Sex: Female

DRUGS (1)
  1. HYCAMTIN [Suspect]
     Active Substance: TOPOTECAN HYDROCHLORIDE
     Indication: NEOPLASM MALIGNANT
     Dosage: (0.25 MG 1 CAPSULE AND 1 MG 3 CAPSULE DAILY FOR 5 DAYS EVERY 21 DAY CYCLE)
     Route: 048
     Dates: start: 20161223, end: 20170224

REACTIONS (4)
  - Pyrexia [Unknown]
  - Nausea [Unknown]
  - Diarrhoea [Unknown]
  - Vomiting [Unknown]

NARRATIVE: CASE EVENT DATE: 20170219
